FAERS Safety Report 4822724-4 (Version None)
Quarter: 2005Q4

REPORT INFORMATION
  Report Type: 
  Country: None (occurrence: None)
  Receive Date: 20051104
  Receipt Date: 20051027
  Transmission Date: 20060501
  Serious: Yes (Hospitalization)
  Sender: FDA-Public Use
  Company Number: 2005125120

PATIENT
  Age: 72 Year
  Sex: Male
  Weight: 89.4 kg

DRUGS (11)
  1. ATORVASTATIN CALCIUM [Suspect]
     Indication: HYPERCHOLESTEROLAEMIA
     Dosage: 40 MG (40 MG, 1 IN 1 D), ORAL
     Route: 048
     Dates: end: 20050901
  2. FERROUS FUMARATE [Suspect]
     Indication: RENAL FAILURE
     Dosage: (TID), ORAL
     Route: 048
     Dates: start: 20050201
  3. LANTUS [Concomitant]
  4. ACTRAPID (INSULIN) [Concomitant]
  5. FUROSEMIDE [Concomitant]
  6. IRBESARTAN [Concomitant]
  7. AMLODIPINE [Concomitant]
  8. ALLOPURINOL [Concomitant]
  9. OMEPRAZOLE [Concomitant]
  10. FLUTICASONE PROPIONATE [Concomitant]
  11. SALMETEROL (SALMETEROL) [Concomitant]

REACTIONS (5)
  - ANOREXIA [None]
  - HIATUS HERNIA [None]
  - NAUSEA [None]
  - VOMITING [None]
  - WEIGHT DECREASED [None]
